FAERS Safety Report 10949078 (Version 1)
Quarter: 2015Q1

REPORT INFORMATION
  Report Type: Spontaneous
  Country: JP (occurrence: JP)
  Receive Date: 20150324
  Receipt Date: 20150324
  Transmission Date: 20150721
  Serious: Yes (Death, Hospitalization, Other)
  Sender: FDA-Public Use
  Company Number: JP-ASTELLAS-2007JP002066

PATIENT
  Age: 54 Year
  Sex: Male

DRUGS (4)
  1. GANCICLOVIR. [Concomitant]
     Active Substance: GANCICLOVIR
     Indication: CYTOMEGALOVIRUS INFECTION
     Dosage: UNK, UNK
     Route: 065
  2. INTERFERON ALFA-2B [Concomitant]
     Active Substance: INTERFERON ALFA-2B
     Indication: HEPATITIS C RNA POSITIVE
     Route: 065
  3. RIBAVIRIN. [Concomitant]
     Active Substance: RIBAVIRIN
     Indication: HEPATITIS C RNA POSITIVE
     Route: 065
  4. PROGRAF [Suspect]
     Active Substance: TACROLIMUS\TACROLIMUS ANHYDROUS
     Indication: LIVER TRANSPLANT
     Dosage: UNK, UNK
     Route: 065

REACTIONS (5)
  - Thrombotic microangiopathy [Fatal]
  - Hepatitis C RNA positive [Unknown]
  - Intra-abdominal haemorrhage [Unknown]
  - Cytomegalovirus infection [Unknown]
  - Portal vein thrombosis [Unknown]
